FAERS Safety Report 7115132-7 (Version None)
Quarter: 2010Q4

REPORT INFORMATION
  Report Type: 
  Country: None (occurrence: None)
  Receive Date: 20101122
  Receipt Date: 20101116
  Transmission Date: 20110411
  Serious: Yes (Death, Hospitalization)
  Sender: FDA-Public Use
  Company Number: US-CELGENEUS-163-20785-10072434

PATIENT
  Sex: Male

DRUGS (6)
  1. THALOMID [Suspect]
     Indication: MYELOPROLIFERATIVE DISORDER
     Route: 048
     Dates: start: 20100629, end: 20100724
  2. THALOMID [Suspect]
     Indication: LEUKOCYTOSIS
  3. THALOMID [Suspect]
     Indication: THROMBOCYTOPENIA
  4. THALOMID [Suspect]
     Indication: MYELOFIBROSIS
  5. HYDREA [Concomitant]
     Route: 065
     Dates: start: 20100707
  6. PREDNISONE [Concomitant]
     Route: 065
     Dates: start: 20100622

REACTIONS (2)
  - CARDIAC DISORDER [None]
  - LUNG DISORDER [None]
